FAERS Safety Report 9788036 (Version 1)
Quarter: 2013Q4

REPORT INFORMATION
  Report Type: Spontaneous
  Country: US (occurrence: None)
  Receive Date: 20131227
  Receipt Date: 20131227
  Transmission Date: 20140711
  Serious: Yes (Hospitalization)
  Sender: FDA-Public Use
  Company Number: None

PATIENT
  Age: 60 Year
  Sex: Male
  Weight: 76.3 kg

DRUGS (14)
  1. GLIPIZIDE [Suspect]
     Indication: DIABETES MELLITUS
     Dosage: CHRONIC
     Route: 048
  2. ACTOS [Suspect]
     Indication: DIABETES MELLITUS
     Dosage: CHRONIC
     Route: 048
  3. LOVASTATIN [Concomitant]
  4. METOPROLOL [Concomitant]
  5. OMEPRAZOLE [Concomitant]
  6. METHIMAZOLE [Concomitant]
  7. OMEGA 3 [Concomitant]
  8. GABAPENTIN [Concomitant]
  9. LIDOCAINE TOP [Concomitant]
  10. SENNA [Concomitant]
  11. DOCUSATE [Concomitant]
  12. ASA [Concomitant]
  13. CLINDAMYCIN [Concomitant]
  14. NOVOLIN [Suspect]
     Indication: DIABETES MELLITUS
     Dosage: STRENGTH: 6UNITS?QUANTITY:?FREQUENCY:BID 8A/8P?HOW WAS IT TAKEN OR USED:SQ?

REACTIONS (2)
  - Hyperglycaemia [None]
  - Hypoglycaemia [None]
